FAERS Safety Report 4864711-6 (Version None)
Quarter: 2005Q4

REPORT INFORMATION
  Report Type: 
  Country: None (occurrence: None)
  Receive Date: 20051222
  Receipt Date: 20041215
  Transmission Date: 20060501
  Serious: Yes (Hospitalization, Other)
  Sender: FDA-Public Use
  Company Number: US-MERCK-0412USA01981

PATIENT
  Age: 72 Year
  Sex: Female

DRUGS (17)
  1. VIOXX [Suspect]
     Route: 048
     Dates: start: 20000401, end: 20041001
  2. ESTRADIOL [Concomitant]
     Route: 048
  3. MIACALCIN [Concomitant]
     Route: 048
  4. ENALAPRIL MALEATE [Concomitant]
     Route: 048
  5. LEVOXYL [Concomitant]
     Route: 048
  6. DARVOCET-N 100 [Concomitant]
     Route: 048
  7. CYCLOBENZAPRINE HYDROCHLORIDE [Concomitant]
     Route: 048
  8. XALATAN [Concomitant]
     Route: 047
  9. PLAVIX [Concomitant]
     Route: 048
  10. ACIPHEX [Concomitant]
     Route: 048
  11. LIPITOR [Concomitant]
     Route: 048
  12. CALCIUM (UNSPECIFIED) AND VITAMIN D (UNSPECIFIED) [Concomitant]
     Route: 048
  13. IRON (UNSPECIFIED) [Concomitant]
     Route: 048
  14. ZOCOR [Concomitant]
     Route: 048
  15. CENTRUM SILVER [Concomitant]
     Route: 065
  16. ESTRATEST [Concomitant]
     Route: 065
  17. CYTOTEC [Concomitant]
     Route: 065

REACTIONS (22)
  - ACETABULUM FRACTURE [None]
  - ADENOMA BENIGN [None]
  - CARPAL TUNNEL SYNDROME [None]
  - CEREBRAL ISCHAEMIA [None]
  - CEREBROVASCULAR ACCIDENT [None]
  - COMMINUTED FRACTURE [None]
  - COMPUTERISED TOMOGRAM ABNORMAL [None]
  - CUBITAL TUNNEL SYNDROME [None]
  - CYST [None]
  - DIVERTICULITIS [None]
  - DIVERTICULUM [None]
  - FALL [None]
  - GASTRITIS [None]
  - HAEMATURIA [None]
  - HAEMORRHOIDS [None]
  - HEMIPLEGIA [None]
  - HIP FRACTURE [None]
  - OCCULT BLOOD POSITIVE [None]
  - OVARIAN CYST [None]
  - PATHOLOGICAL FRACTURE [None]
  - POSTOPERATIVE WOUND INFECTION [None]
  - TRANSIENT ISCHAEMIC ATTACK [None]
